FAERS Safety Report 11637141 (Version 2)
Quarter: 2015Q4

REPORT INFORMATION
  Report Type: Report from Study
  Country: US (occurrence: US)
  Receive Date: 20151016
  Receipt Date: 20151021
  Transmission Date: 20160304
  Serious: Yes (Death)
  Sender: FDA-Public Use
  Company Number: US-ACTELION-A-NJ2015-125538

PATIENT
  Age: 75 Year
  Sex: Male

DRUGS (4)
  1. LOSARTAN. [Concomitant]
     Active Substance: LOSARTAN
  2. MACITENTAN [Suspect]
     Active Substance: MACITENTAN
     Indication: PULMONARY HYPERTENSION
     Dosage: 10 MG, QD
     Route: 048
     Dates: start: 20140108, end: 20150917
  3. COREG [Concomitant]
     Active Substance: CARVEDILOL
  4. LASIX [Concomitant]
     Active Substance: FUROSEMIDE

REACTIONS (1)
  - Death [Fatal]

NARRATIVE: CASE EVENT DATE: 20150917
